FAERS Safety Report 21286163 (Version 2)
Quarter: 2022Q3

REPORT INFORMATION
  Report Type: Spontaneous
  Country: US (occurrence: US)
  Receive Date: 20220902
  Receipt Date: 20220909
  Transmission Date: 20221027
  Serious: Yes (Other)
  Sender: FDA-Public Use
  Company Number: US-BAYER-2022A121498

PATIENT
  Age: 36 Year
  Sex: Female

DRUGS (1)
  1. KYLEENA [Suspect]
     Active Substance: LEVONORGESTREL
     Indication: Contraception
     Dosage: 17.5?G/DAY
     Route: 015
     Dates: start: 20220623

REACTIONS (4)
  - Uterine perforation [Not Recovered/Not Resolved]
  - Abdominal pain lower [None]
  - Device expulsion [Not Recovered/Not Resolved]
  - Device defective [None]

NARRATIVE: CASE EVENT DATE: 20220721
